FAERS Safety Report 13355555 (Version 1)
Quarter: 2017Q1

REPORT INFORMATION
  Report Type: Spontaneous
  Country: RO (occurrence: RO)
  Receive Date: 20170321
  Receipt Date: 20170321
  Transmission Date: 20170429
  Serious: Yes (Life-Threatening, Hospitalization, Other)
  Sender: FDA-Public Use
  Company Number: RO-PFIZER INC-2017096807

PATIENT
  Age: 54 Year
  Sex: Female

DRUGS (7)
  1. METHOTREXATE. [Concomitant]
     Active Substance: METHOTREXATE
     Dosage: UNK
  2. MEDROL [Suspect]
     Active Substance: METHYLPREDNISOLONE
     Dosage: UNK
  3. VESSEL DUE [Concomitant]
     Dosage: UNK
  4. DIPROPHOS [Concomitant]
     Active Substance: BECLOMETHASONE DIPROPIONATE\BETAMETHASONE SODIUM PHOSPHATE
     Dosage: UNK
  5. ENBREL [Suspect]
     Active Substance: ETANERCEPT
     Indication: PSORIASIS
     Dosage: 50 MG, WEEKLY
     Route: 058
     Dates: start: 2016
  6. DEVARICID [Concomitant]
     Dosage: UNK
  7. DETRALEX [Concomitant]
     Active Substance: DIOSMIN\HESPERIDIN
     Dosage: UNK

REACTIONS (12)
  - Muscle injury [Unknown]
  - Rash pustular [Recovering/Resolving]
  - Infection [Recovering/Resolving]
  - Skin exfoliation [Recovering/Resolving]
  - Metal poisoning [Unknown]
  - Pain [Unknown]
  - Drug ineffective [Unknown]
  - Wound [Recovering/Resolving]
  - Injection site erythema [Unknown]
  - Condition aggravated [Recovering/Resolving]
  - Rash [Recovering/Resolving]
  - Psoriasis [Recovering/Resolving]
